FAERS Safety Report 9148814 (Version 2)
Quarter: 2013Q2

REPORT INFORMATION
  Report Type: Spontaneous
  Country: SE (occurrence: SE)
  Receive Date: 20130308
  Receipt Date: 20130528
  Transmission Date: 20140414
  Serious: Yes (Life-Threatening, Other)
  Sender: FDA-Public Use
  Company Number: PHHY2013SE022249

PATIENT
  Age: 18 Year
  Sex: Male

DRUGS (1)
  1. RITALIN [Suspect]
     Indication: ATTENTION DEFICIT/HYPERACTIVITY DISORDER
     Dosage: 50 MG, UNK

REACTIONS (9)
  - Cardiac failure [Recovered/Resolved]
  - Ventricular hypokinesia [Recovered/Resolved]
  - Chest discomfort [Recovered/Resolved]
  - Dyspnoea [Recovered/Resolved]
  - Ejection fraction decreased [Recovered/Resolved]
  - Myocarditis [Recovered/Resolved]
  - Electrocardiogram T wave inversion [Recovered/Resolved]
  - Electrocardiogram ST segment elevation [Recovered/Resolved]
  - Pyrexia [Recovered/Resolved]
